FAERS Safety Report 12426330 (Version 1)
Quarter: 2016Q2

REPORT INFORMATION
  Report Type: Spontaneous
  Country: US (occurrence: US)
  Receive Date: 20160601
  Receipt Date: 20160601
  Transmission Date: 20160815
  Serious: No
  Sender: FDA-Public Use
  Company Number: US-MISSION PHARMACAL COMPANY-1053049

PATIENT
  Age: 70 Year
  Sex: Male

DRUGS (5)
  1. RINCINOL [Concomitant]
  2. ALENDRONATE [Concomitant]
     Active Substance: ALENDRONATE SODIUM
  3. THIOLA [Suspect]
     Active Substance: TIOPRONIN
     Indication: CYSTINURIA
     Route: 065
     Dates: start: 20141123
  4. PAIN PILLS [Concomitant]
     Active Substance: UNSPECIFIED INGREDIENT
  5. METHOTREXATE (METHOTREXATE SODIUM) [Concomitant]
     Active Substance: METHOTREXATE SODIUM
     Route: 065

REACTIONS (1)
  - Stomatitis [Recovered/Resolved]
